FAERS Safety Report 11193121 (Version 1)
Quarter: 2015Q2

REPORT INFORMATION
  Report Type: Spontaneous
  Country: GB (occurrence: GB)
  Receive Date: 20150616
  Receipt Date: 20150616
  Transmission Date: 20150821
  Serious: Yes (Other)
  Sender: FDA-Public Use
  Company Number: GB-JNJFOC-20150611282

PATIENT
  Age: 43 Year

DRUGS (1)
  1. XARELTO [Suspect]
     Active Substance: RIVAROXABAN
     Indication: PRODUCT USED FOR UNKNOWN INDICATION
     Route: 048
     Dates: start: 201405

REACTIONS (3)
  - Swelling face [Recovered/Resolved]
  - Eyelid oedema [Recovered/Resolved]
  - Parotid gland enlargement [Not Recovered/Not Resolved]

NARRATIVE: CASE EVENT DATE: 20150501
